FAERS Safety Report 25811321 (Version 1)
Quarter: 2025Q3

REPORT INFORMATION
  Report Type: Spontaneous
  Country: US (occurrence: US)
  Receive Date: 20250917
  Receipt Date: 20250917
  Transmission Date: 20251021
  Serious: No
  Sender: BRAEBURN PHARMACEUTICALS
  Company Number: US-BRAEBURN PHARMACEUTICALS-US-BRA-25-000650

PATIENT
  Age: 38 Year
  Sex: Male
  Weight: 79.819 kg

DRUGS (1)
  1. BRIXADI [Suspect]
     Active Substance: BUPRENORPHINE
     Indication: Drug dependence
     Dosage: 128 MILLIGRAM, MONTHLY
     Route: 065
     Dates: start: 202411, end: 202503

REACTIONS (2)
  - Depression [Unknown]
  - Lethargy [Unknown]

NARRATIVE: CASE EVENT DATE: 20250401
